FAERS Safety Report 16051770 (Version 3)
Quarter: 2025Q1

REPORT INFORMATION
  Report Type: Spontaneous
  Country: CA (occurrence: CA)
  Receive Date: 20190308
  Receipt Date: 20250205
  Transmission Date: 20250409
  Serious: Yes (Hospitalization, Other)
  Sender: TEVA
  Company Number: CA-TEVA-2019-CA-1020267

PATIENT
  Age: 63 Year
  Sex: Female
  Weight: 73 kg

DRUGS (46)
  1. METHOTREXATE [Suspect]
     Active Substance: METHOTREXATE
     Indication: Product used for unknown indication
     Route: 065
  2. CYCLOSPORINE [Suspect]
     Active Substance: CYCLOSPORINE
     Indication: Product used for unknown indication
     Route: 065
  3. ACITRETIN [Concomitant]
     Active Substance: ACITRETIN
     Indication: Product used for unknown indication
     Route: 050
  4. CYCLOSPORINE [Suspect]
     Active Substance: CYCLOSPORINE
     Indication: Product used for unknown indication
     Route: 048
  5. CYCLOSPORINE [Suspect]
     Active Substance: CYCLOSPORINE
     Indication: Product used for unknown indication
     Route: 048
  6. CIMZIA [Concomitant]
     Active Substance: CERTOLIZUMAB PEGOL
     Indication: Product used for unknown indication
     Route: 065
  7. COSENTYX [Suspect]
     Active Substance: SECUKINUMAB
     Indication: Psoriasis
     Route: 058
  8. COSENTYX [Suspect]
     Active Substance: SECUKINUMAB
     Indication: Psoriasis
     Route: 058
  9. COSENTYX [Suspect]
     Active Substance: SECUKINUMAB
     Indication: Psoriasis
     Route: 058
  10. COSENTYX [Suspect]
     Active Substance: SECUKINUMAB
     Indication: Psoriasis
     Route: 058
  11. COSENTYX [Suspect]
     Active Substance: SECUKINUMAB
     Indication: Psoriasis
     Route: 058
  12. COSENTYX [Suspect]
     Active Substance: SECUKINUMAB
     Indication: Psoriasis
     Route: 058
  13. COSENTYX [Suspect]
     Active Substance: SECUKINUMAB
     Indication: Psoriasis
     Route: 058
  14. COSENTYX [Suspect]
     Active Substance: SECUKINUMAB
     Indication: Psoriasis
     Route: 058
  15. COSENTYX [Suspect]
     Active Substance: SECUKINUMAB
     Indication: Psoriasis
     Route: 058
  16. COSENTYX [Suspect]
     Active Substance: SECUKINUMAB
     Indication: Psoriasis
     Route: 058
  17. COSENTYX [Suspect]
     Active Substance: SECUKINUMAB
     Indication: Psoriasis
     Route: 058
  18. COSENTYX [Suspect]
     Active Substance: SECUKINUMAB
     Indication: Psoriasis
     Route: 058
  19. COSENTYX [Suspect]
     Active Substance: SECUKINUMAB
     Indication: Psoriasis
     Route: 058
  20. CLOBETASOL [Concomitant]
     Active Substance: CLOBETASOL
     Indication: Product used for unknown indication
     Route: 061
  21. ENBREL [Concomitant]
     Active Substance: ETANERCEPT
     Indication: Product used for unknown indication
     Route: 065
  22. HUMIRA [Concomitant]
     Active Substance: ADALIMUMAB
     Indication: Product used for unknown indication
     Route: 065
  23. BETAMETHASONE DIPROPIONATE CALCIPOTRIOL MONOHYDRATE [Concomitant]
     Indication: Product used for unknown indication
     Route: 065
  24. LEVOTHYROXINE SODIUM [Concomitant]
     Active Substance: LEVOTHYROXINE SODIUM
     Indication: Hypothyroidism
     Route: 065
  25. LEVOTHYROXINE SODIUM [Concomitant]
     Active Substance: LEVOTHYROXINE SODIUM
     Indication: Hypothyroidism
     Dosage: DOSAGE FORM: NOT SPECIFIED
     Route: 065
  26. GOLIMUMAB [Concomitant]
     Active Substance: GOLIMUMAB
     Indication: Product used for unknown indication
     Route: 065
  27. NAPROXEN [Concomitant]
     Active Substance: NAPROXEN
     Indication: Psoriatic arthropathy
     Route: 065
  28. NAPROXEN [Concomitant]
     Active Substance: NAPROXEN
     Indication: Psoriatic arthropathy
     Dosage: DOSAGE FORM: NOT SPECIFIED
     Route: 065
  29. PREDNISONE [Concomitant]
     Active Substance: PREDNISONE
     Indication: Product used for unknown indication
     Route: 065
  30. PREGABALIN [Concomitant]
     Active Substance: PREGABALIN
     Indication: Tendonitis
     Route: 065
  31. PREGABALIN [Concomitant]
     Active Substance: PREGABALIN
     Indication: Tendonitis
     Route: 065
  32. IXEKIZUMAB [Concomitant]
     Active Substance: IXEKIZUMAB
     Indication: Product used for unknown indication
     Route: 065
  33. IXEKIZUMAB [Concomitant]
     Active Substance: IXEKIZUMAB
     Indication: Product used for unknown indication
     Route: 065
  34. ROSUVASTATIN [Concomitant]
     Active Substance: ROSUVASTATIN
     Indication: Blood cholesterol increased
     Route: 065
  35. ROSUVASTATIN [Concomitant]
     Active Substance: ROSUVASTATIN
     Indication: Blood cholesterol increased
     Route: 065
  36. ROSUVASTATIN [Concomitant]
     Active Substance: ROSUVASTATIN
     Indication: Blood cholesterol increased
     Dosage: DOSAGE FORM: NOT SPECIFIED
     Route: 065
  37. SYNTHROID [Concomitant]
     Active Substance: LEVOTHYROXINE SODIUM
     Indication: Product used for unknown indication
     Route: 065
  38. TELMISARTAN [Concomitant]
     Active Substance: TELMISARTAN
     Indication: Hypertension
     Route: 065
  39. TELMISARTAN [Concomitant]
     Active Substance: TELMISARTAN
     Indication: Hypertension
     Route: 065
  40. TOFACITINIB [Suspect]
     Active Substance: TOFACITINIB
     Indication: Product used for unknown indication
     Route: 065
  41. TOFACITINIB [Suspect]
     Active Substance: TOFACITINIB
     Indication: Product used for unknown indication
     Route: 065
  42. TRAMADOL [Concomitant]
     Active Substance: TRAMADOL
     Indication: Tendonitis
     Route: 065
  43. TRAMADOL [Concomitant]
     Active Substance: TRAMADOL
     Indication: Tendonitis
     Route: 065
  44. CLOBETASOL [Concomitant]
     Active Substance: CLOBETASOL
     Indication: Product used for unknown indication
     Route: 065
  45. PSORALEN [Concomitant]
     Active Substance: PSORALEN
     Indication: Product used for unknown indication
     Route: 065
  46. METHOTREXATE [Suspect]
     Active Substance: METHOTREXATE
     Indication: Product used for unknown indication
     Dosage: DOSAGE FORM: SOLUTION INTRA- ARTERIAL?THERAPY DURATION: 365.0 ?METHOTREXATE INJECTION, USP
     Route: 048

REACTIONS (11)
  - Squamous cell carcinoma of skin [Not Recovered/Not Resolved]
  - Drug ineffective [Not Recovered/Not Resolved]
  - Gait inability [Not Recovered/Not Resolved]
  - Actinic keratosis [Not Recovered/Not Resolved]
  - Osteoarthritis [Recovered/Resolved]
  - Diarrhoea [Not Recovered/Not Resolved]
  - Actinic keratosis [Not Recovered/Not Resolved]
  - Squamous cell carcinoma of skin [Not Recovered/Not Resolved]
  - Diffuse alopecia [Not Recovered/Not Resolved]
  - Osteonecrosis [Not Recovered/Not Resolved]
  - Arthralgia [Not Recovered/Not Resolved]
